FAERS Safety Report 4366803-7 (Version None)
Quarter: 2004Q2

REPORT INFORMATION
  Report Type: 
  Country: None (occurrence: None)
  Receive Date: 20040524
  Receipt Date: 20040514
  Transmission Date: 20050107
  Serious: Yes (Other)
  Sender: FDA-Public Use
  Company Number: STA-AE-04-MTX-193

PATIENT
  Age: 17 Year
  Sex: Female

DRUGS (5)
  1. METHOTREXATE [Suspect]
     Indication: JUVENILE ARTHRITIS
     Dosage: 17.5 MG 1X PER 1 WK, ORAL
     Route: 048
  2. ENBREL [Suspect]
     Indication: JUVENILE ARTHRITIS
     Dosage: 25 MG 2X PER 1 WK, SC
     Route: 058
     Dates: start: 20001213, end: 20020918
  3. PREDNISONE TAB [Concomitant]
  4. FOLIC ACID [Concomitant]
  5. NAPROSYN [Concomitant]

REACTIONS (1)
  - PYELONEPHRITIS [None]
